FAERS Safety Report 16282702 (Version 2)
Quarter: 2019Q2

REPORT INFORMATION
  Report Type: Spontaneous
  Country: US (occurrence: US)
  Receive Date: 20190507
  Receipt Date: 20190531
  Transmission Date: 20190711
  Serious: Yes (Other)
  Sender: FDA-Public Use
  Company Number: US-AMREGENT-20190875

PATIENT
  Age: 40 Year
  Sex: Female

DRUGS (1)
  1. INJECTAFER [Suspect]
     Active Substance: FERRIC CARBOXYMALTOSE
     Dosage: 750 MG
     Route: 041
     Dates: start: 2018

REACTIONS (7)
  - Haemorrhagic diathesis [Unknown]
  - Increased tendency to bruise [Recovering/Resolving]
  - Constipation [Recovering/Resolving]
  - Rash generalised [Recovering/Resolving]
  - Nausea [Recovering/Resolving]
  - Hypophosphataemia [Unknown]
  - Dizziness [Recovering/Resolving]

NARRATIVE: CASE EVENT DATE: 2018
